FAERS Safety Report 7278029-8 (Version None)
Quarter: 2011Q1

REPORT INFORMATION
  Report Type: 
  Country: None (occurrence: None)
  Receive Date: 20110207
  Receipt Date: 20110203
  Transmission Date: 20110831
  Serious: Yes (Hospitalization)
  Sender: FDA-Public Use
  Company Number: FR-ABBOTT-11P-056-0702511-00

PATIENT
  Sex: Male

DRUGS (14)
  1. VASTAREL [Concomitant]
     Indication: PRODUCT USED FOR UNKNOWN INDICATION
  2. ENDOTELON [Concomitant]
     Indication: PRODUCT USED FOR UNKNOWN INDICATION
  3. TOCO [Concomitant]
     Indication: PRODUCT USED FOR UNKNOWN INDICATION
  4. DOMPERIDONE [Concomitant]
     Indication: PRODUCT USED FOR UNKNOWN INDICATION
  5. OMEPRAZOLE [Concomitant]
     Indication: PRODUCT USED FOR UNKNOWN INDICATION
  6. SURBRONC [Concomitant]
     Indication: PRODUCT USED FOR UNKNOWN INDICATION
  7. LEXOMIL [Concomitant]
     Indication: PRODUCT USED FOR UNKNOWN INDICATION
  8. KESTIN [Concomitant]
     Indication: PRODUCT USED FOR UNKNOWN INDICATION
  9. SOTALOL HCL [Concomitant]
     Indication: PRODUCT USED FOR UNKNOWN INDICATION
  10. ACTISKENAN [Concomitant]
     Indication: PRODUCT USED FOR UNKNOWN INDICATION
  11. FORLAX [Concomitant]
     Indication: PRODUCT USED FOR UNKNOWN INDICATION
  12. HUMIRA [Suspect]
     Indication: ANKYLOSING SPONDYLITIS
     Route: 058
     Dates: start: 20090101, end: 20110112
  13. FORADIL [Concomitant]
     Indication: PRODUCT USED FOR UNKNOWN INDICATION
  14. MORPHINE SULFATE [Concomitant]
     Indication: PRODUCT USED FOR UNKNOWN INDICATION

REACTIONS (4)
  - CHILLS [None]
  - TREMOR [None]
  - PYREXIA [None]
  - ASTHENIA [None]
